FAERS Safety Report 15663705 (Version 1)
Quarter: 2018Q4

REPORT INFORMATION
  Report Type: Spontaneous
  Country: US (occurrence: US)
  Receive Date: 20181128
  Receipt Date: 20181128
  Transmission Date: 20190205
  Serious: No
  Sender: FDA-Public Use
  Company Number: US-TEVA-2018-US-979123

PATIENT
  Sex: Male

DRUGS (1)
  1. PERMETHRIN TEVA [Suspect]
     Active Substance: PERMETHRIN
     Indication: MITE ALLERGY
     Dates: start: 20181015

REACTIONS (1)
  - Drug ineffective [Unknown]

NARRATIVE: CASE EVENT DATE: 20181015
